FAERS Safety Report 5008401-8 (Version None)
Quarter: 2006Q1

REPORT INFORMATION
  Report Type: 
  Country: None (occurrence: None)
  Receive Date: 20060331
  Receipt Date: 20051012
  Transmission Date: 20060701
  Serious: Yes (Hospitalization)
  Sender: FDA-Public Use
  Company Number: US154558

PATIENT
  Age: 80 Year
  Sex: Male
  Weight: 95.3 kg

DRUGS (18)
  1. NEULASTA [Suspect]
     Indication: CHEMOTHERAPY
     Dosage: 6 MG, SC
     Route: 058
     Dates: start: 20051008
  2. NEULASTA [Suspect]
  3. NEULASTA [Suspect]
  4. NEULASTA [Suspect]
  5. NEULASTA [Concomitant]
  6. FLUOROURACIL [Suspect]
     Dates: start: 20051005
  7. TOPROL-XL [Suspect]
     Dosage: 50 MG, 1 IN 1 DAYS, PO
     Route: 048
     Dates: start: 20051014
  8. IRINOTECAN HCL [Concomitant]
  9. CALCIUM FOLINATE [Concomitant]
  10. FLUOROURACIL [Concomitant]
  11. BEVACIZUMAB [Concomitant]
  12. WARFARIN SODIUM [Concomitant]
  13. TOBRAMYCIN + DEXAMETHASONE [Concomitant]
  14. FLUTICASONE PROPIONATE [Concomitant]
  15. COMBIVENT [Concomitant]
  16. PANTOPRAZOLE SODIUM [Concomitant]
  17. TAMSULOSIN HCL [Concomitant]
  18. BUMETANIDE [Concomitant]

REACTIONS (1)
  - FEBRILE NEUTROPENIA [None]
